FAERS Safety Report 23073264 (Version 2)
Quarter: 2023Q4

REPORT INFORMATION
  Report Type: Report from Study
  Country: US (occurrence: US)
  Receive Date: 20231017
  Receipt Date: 20231201
  Transmission Date: 20240109
  Serious: Yes (Other)
  Sender: FDA-Public Use
  Company Number: US-ACADIA PHARMACEUTICALS INC.-ACA-2023-TRF-004584

PATIENT
  Sex: Female

DRUGS (1)
  1. DAYBUE [Suspect]
     Active Substance: TROFINETIDE
     Route: 065

REACTIONS (12)
  - Dystonia [Unknown]
  - Intentional self-injury [Unknown]
  - Frequent bowel movements [Unknown]
  - Crying [Unknown]
  - Breath holding [Unknown]
  - Condition aggravated [Unknown]
  - Constipation [Unknown]
  - Gastrointestinal disorder [Unknown]
  - Screaming [Unknown]
  - Diarrhoea [Unknown]
  - Decreased appetite [Unknown]
  - Vomiting [Unknown]
